FAERS Safety Report 7142150-5 (Version None)
Quarter: 2010Q4

REPORT INFORMATION
  Report Type: 
  Country: None (occurrence: None)
  Receive Date: 20101207
  Receipt Date: 20101130
  Transmission Date: 20110411
  Serious: Yes (Other)
  Sender: FDA-Public Use
  Company Number: CA-PFIZER INC-2010124363

PATIENT
  Age: 58 Year
  Sex: Female

DRUGS (4)
  1. LIPITOR [Suspect]
     Indication: BLOOD CHOLESTEROL
     Dosage: 20 MG, 1X/DAY AT BEDTIME
     Dates: end: 20100922
  2. METFORMIN [Concomitant]
     Indication: DIABETES MELLITUS
     Dosage: 500 MG, 2X/DAY
     Dates: start: 20020101
  3. ELTROXIN [Concomitant]
     Indication: THYROID DISORDER
     Dosage: .75 MG, 1X/DAY
     Dates: start: 20040101
  4. HALL'S COUGH FORMULA [Concomitant]
     Indication: OROPHARYNGEAL PAIN
     Route: 048

REACTIONS (6)
  - DYSPHAGIA [None]
  - HYPOAESTHESIA FACIAL [None]
  - PARAESTHESIA ORAL [None]
  - PHARYNGEAL OEDEMA [None]
  - SWELLING FACE [None]
  - SWOLLEN TONGUE [None]
